FAERS Safety Report 11446173 (Version 1)
Quarter: 2015Q3

REPORT INFORMATION
  Report Type: Spontaneous
  Country: US (occurrence: US)
  Receive Date: 20150831
  Receipt Date: 20150831
  Transmission Date: 20151125
  Serious: No
  Sender: FDA-Public Use
  Company Number: US-ELI_LILLY_AND_COMPANY-US200810004426

PATIENT
  Age: 29 Year
  Sex: Female

DRUGS (2)
  1. ADIPEX-P [Concomitant]
     Active Substance: PHENTERMINE HYDROCHLORIDE
     Indication: WEIGHT DECREASED
  2. CYMBALTA [Suspect]
     Active Substance: DULOXETINE HYDROCHLORIDE
     Indication: ANXIETY
     Dosage: 30 MG, DAILY (1/D)

REACTIONS (9)
  - Drug withdrawal syndrome [Not Recovered/Not Resolved]
  - Feeling abnormal [Unknown]
  - Paraesthesia [Not Recovered/Not Resolved]
  - Hypoaesthesia oral [Not Recovered/Not Resolved]
  - Hyperhidrosis [Unknown]
  - Chest discomfort [Not Recovered/Not Resolved]
  - Nausea [Unknown]
  - Tremor [Not Recovered/Not Resolved]
  - Activities of daily living impaired [Not Recovered/Not Resolved]

NARRATIVE: CASE EVENT DATE: 200810
